FAERS Safety Report 10264652 (Version 1)
Quarter: 2014Q2

REPORT INFORMATION
  Report Type: Spontaneous
  Country: US (occurrence: US)
  Receive Date: 20140627
  Receipt Date: 20140627
  Transmission Date: 20141212
  Serious: No
  Sender: FDA-Public Use
  Company Number: US-009507513-1406USA007633

PATIENT
  Age: 28 Year
  Sex: Female

DRUGS (1)
  1. NUVARING [Suspect]
     Indication: CONTRACEPTION
     Dosage: DOSE/FREQUENCY: INSERTED FOR 21 DAYS, REMOVED FOR 5 DAYS
     Route: 067
     Dates: start: 2009

REACTIONS (2)
  - Abnormal withdrawal bleeding [Unknown]
  - Drug administration error [Unknown]
